FAERS Safety Report 8565497-4 (Version None)
Quarter: 2012Q3

REPORT INFORMATION
  Report Type: 
  Country: None (occurrence: None)
  Receive Date: 20120803
  Receipt Date: 20120727
  Transmission Date: 20120928
  Serious: Yes (Hospitalization)
  Sender: FDA-Public Use
  Company Number: NO-UCBSA-055854

PATIENT
  Age: 66 Year
  Sex: Female

DRUGS (11)
  1. PREDNISOLONE [Concomitant]
     Indication: RHEUMATOID ARTHRITIS
  2. ZOLEDRONOC ACID [Concomitant]
     Route: 041
     Dates: start: 20120201
  3. CIMZIA [Suspect]
     Route: 058
     Dates: start: 20111201, end: 20120501
  4. METHOTREXATE [Concomitant]
     Indication: RHEUMATOID ARTHRITIS
  5. CITALOPRAM HYDROBROMIDE [Concomitant]
     Indication: DEPRESSION
     Route: 048
  6. SYMBICORT [Concomitant]
     Indication: ASTHMA
     Route: 055
  7. PREDNISOLONE [Concomitant]
     Route: 048
  8. ZOLEDRONOC ACID [Concomitant]
     Route: 041
     Dates: start: 20110101
  9. CIMZIA [Suspect]
     Indication: RHEUMATOID ARTHRITIS
     Route: 058
     Dates: start: 20110801, end: 20111101
  10. FOLIC ACID [Concomitant]
     Indication: RHEUMATOID ARTHRITIS
     Route: 048
  11. METHOTREXATE [Concomitant]
     Route: 048

REACTIONS (3)
  - ARTHRALGIA [None]
  - C-REACTIVE PROTEIN INCREASED [None]
  - MALAISE [None]
